FAERS Safety Report 9192727 (Version 1)
Quarter: 2013Q1

REPORT INFORMATION
  Report Type: Spontaneous
  Country: US (occurrence: None)
  Receive Date: 20120703
  Receipt Date: 20120703
  Transmission Date: 20140127
  Serious: Yes (Other)
  Sender: FDA-Public Use
  Company Number: PHEH2012US010466

PATIENT
  Age: 41 Year
  Sex: Female

DRUGS (8)
  1. GILENYA [Suspect]
     Indication: RELAPSING-REMITTING MULTIPLE SCLEROSIS
     Route: 048
     Dates: start: 20120501
  2. PROVIGIL (MODAFINIL) [Concomitant]
  3. LEXAPRO (ESCITALOPRAM OXALATE) [Concomitant]
  4. AMBIEN (ZOLPIDEM TARTRATE) [Concomitant]
  5. SYNTHROID (LEVOTHYROXINE SODIUM) [Concomitant]
  6. LISINOPRIL (LISINOPRIL) [Concomitant]
  7. VITAMIN D (ERGOCALCIFEROL) [Concomitant]
  8. VITAMIN B12 (CYANOCOBALAMIN) [Concomitant]

REACTIONS (2)
  - Upper respiratory tract infection [None]
  - Cough [None]
